FAERS Safety Report 19042276 (Version 1)
Quarter: 2021Q1

REPORT INFORMATION
  Report Type: Report from Study
  Country: EG (occurrence: EG)
  Receive Date: 20210323
  Receipt Date: 20210323
  Transmission Date: 20210420
  Serious: Yes (Other)
  Sender: FDA-Public Use
  Company Number: EG-REGENERON PHARMACEUTICALS, INC.-2021-35473

PATIENT

DRUGS (9)
  1. ATOREZA [Concomitant]
     Dosage: UNK
  2. EYLEA [Suspect]
     Active Substance: AFLIBERCEPT
     Indication: MACULAR OEDEMA
     Dosage: LEFT EYE, ONCE
     Route: 031
     Dates: start: 20191104, end: 20191104
  3. EZAPRIL?CO [Concomitant]
     Indication: HYPERTENSION
     Dosage: 1 DF, QD
  4. ATOREZA [Concomitant]
     Indication: HYPERCHOLESTEROLAEMIA
     Dosage: 1 DF, QD
  5. METFORMIN W/SITAGLIPTIN [Concomitant]
     Active Substance: METFORMIN\SITAGLIPTIN PHOSPHATE
     Indication: DIABETES MELLITUS
     Dosage: 1 DF, QD
  6. EYLEA [Suspect]
     Active Substance: AFLIBERCEPT
     Dosage: RIGHT EYE, ONCE
     Route: 031
     Dates: start: 20210220, end: 20210220
  7. EYLEA [Suspect]
     Active Substance: AFLIBERCEPT
     Dosage: UNK; LEFT EYE; THE TOTAL NUMBER OF INJECTIONS IS 3 (1R + 2L)
     Route: 031
     Dates: start: 20210221
  8. CONCOR [Concomitant]
     Active Substance: BISOPROLOL FUMARATE
     Dosage: 5 MG, QD
  9. CONCOR [Concomitant]
     Active Substance: BISOPROLOL FUMARATE
     Indication: HYPERTENSION
     Dosage: 0.5 DF, QD (   1/2 TABLET ONCE DAILY )

REACTIONS (3)
  - Off label use [Not Recovered/Not Resolved]
  - Product use issue [Not Recovered/Not Resolved]
  - Drug ineffective [Not Recovered/Not Resolved]

NARRATIVE: CASE EVENT DATE: 20191104
